FAERS Safety Report 21748861 (Version 1)
Quarter: 2022Q4

REPORT INFORMATION
  Report Type: Spontaneous
  Country: US (occurrence: None)
  Receive Date: 20221216
  Receipt Date: 20221216
  Transmission Date: 20230113
  Serious: Yes (Hospitalization)
  Sender: FDA-Public Use
  Company Number: None

PATIENT
  Age: 59 Year
  Sex: Male
  Weight: 26 kg

DRUGS (28)
  1. TAFINLAR [Suspect]
     Active Substance: DABRAFENIB MESYLATE
     Indication: Malignant melanoma
     Dosage: FREQUENCY : TWICE A DAY;?
     Route: 048
  2. MEKINIST [Suspect]
     Active Substance: TRAMETINIB DIMETHYL SULFOXIDE
     Indication: Malignant melanoma
     Dosage: FREQUENCY : DAILY;?
     Route: 048
  3. ALBUTEROL SULFATE [Concomitant]
     Active Substance: ALBUTEROL SULFATE
  4. AMLODIPINE [Concomitant]
     Active Substance: AMLODIPINE BESYLATE
  5. ATORVASTATIN CALCIUM [Concomitant]
     Active Substance: ATORVASTATIN CALCIUM
  6. BACITRACIN [Concomitant]
     Active Substance: BACITRACIN
  7. BENICAR [Concomitant]
     Active Substance: OLMESARTAN MEDOXOMIL
  8. BUPROPION [Concomitant]
     Active Substance: BUPROPION
  9. CYMBALTA [Concomitant]
     Active Substance: DULOXETINE HYDROCHLORIDE
  10. ELIQUIS [Concomitant]
     Active Substance: APIXABAN
  11. FAMOTIDINE [Concomitant]
     Active Substance: FAMOTIDINE
  12. FLONASE ALLERGY RELIEF [Concomitant]
     Active Substance: FLUTICASONE PROPIONATE
  13. GABAPENTIN [Concomitant]
     Active Substance: GABAPENTIN
  14. GABAPENTIN [Concomitant]
     Active Substance: GABAPENTIN
  15. GENTAMICIN [Concomitant]
     Active Substance: GENTAMICIN
  16. ACETAMINOPHEN\HYDROCODONE [Concomitant]
     Active Substance: ACETAMINOPHEN\HYDROCODONE
  17. LASIX [Concomitant]
     Active Substance: FUROSEMIDE
  18. LEVOTHYROXINE [Concomitant]
     Active Substance: LEVOTHYROXINE
  19. MAGNESIUM [Concomitant]
     Active Substance: MAGNESIUM
  20. MUPIROCIN [Concomitant]
     Active Substance: MUPIROCIN
  21. DEVICE [Concomitant]
     Active Substance: DEVICE
  22. PREDNISONE [Concomitant]
     Active Substance: PREDNISONE
  23. ROBAXIN [Concomitant]
     Active Substance: METHOCARBAMOL
  24. STIOLTO RESPIMAT [Concomitant]
     Active Substance: OLODATEROL HYDROCHLORIDE\TIOTROPIUM BROMIDE MONOHYDRATE
  25. TRIAMCINOLONE [Concomitant]
     Active Substance: TRIAMCINOLONE
  26. VOLTAREN [Concomitant]
     Active Substance: DICLOFENAC SODIUM
  27. XANAX [Concomitant]
     Active Substance: ALPRAZOLAM
  28. XYZAL [Concomitant]
     Active Substance: LEVOCETIRIZINE DIHYDROCHLORIDE

REACTIONS (4)
  - Liver function test increased [None]
  - Nausea [None]
  - Vomiting [None]
  - Diarrhoea [None]
